FAERS Safety Report 6135556-4 (Version None)
Quarter: 2009Q1

REPORT INFORMATION
  Report Type: 
  Country: None (occurrence: None)
  Receive Date: 20090327
  Receipt Date: 20090319
  Transmission Date: 20090719
  Serious: Yes (Hospitalization)
  Sender: FDA-Public Use
  Company Number: PHHY2009RO10453

PATIENT
  Sex: Male

DRUGS (4)
  1. EXELON [Suspect]
     Indication: DEMENTIA
     Dosage: 4.6 MG/DAY
     Route: 062
     Dates: start: 20090319
  2. GABAPENTIN [Concomitant]
     Dosage: 300 MG, BID
  3. RAMIPRIL [Concomitant]
     Indication: CEREBROVASCULAR ACCIDENT
     Dosage: 10 MG/DAY
  4. RAMIPRIL [Concomitant]
     Indication: HYPERTENSION

REACTIONS (4)
  - AGGRESSION [None]
  - HYPERTENSION [None]
  - PSYCHOMOTOR HYPERACTIVITY [None]
  - PYREXIA [None]
